FAERS Safety Report 22841271 (Version 3)
Quarter: 2024Q1

REPORT INFORMATION
  Report Type: Spontaneous
  Country: FR (occurrence: FR)
  Receive Date: 20230820
  Receipt Date: 20240206
  Transmission Date: 20240410
  Serious: Yes (Congenital Anomaly, Other)
  Sender: FDA-Public Use
  Company Number: None

PATIENT
  Age: 0 Day
  Sex: Female
  Weight: 2 kg

DRUGS (6)
  1. CLOZAPINE [Suspect]
     Active Substance: CLOZAPINE
     Indication: Schizophrenia
     Dosage: DURATION: 231 DAYS
     Route: 048
     Dates: start: 20200703, end: 20210219
  2. ABILIFY [Suspect]
     Active Substance: ARIPIPRAZOLE
     Indication: Schizophrenia
     Dosage: DURATION: 34 DAYS
     Route: 048
     Dates: start: 20200703, end: 20200806
  3. SUBOXONE [Suspect]
     Active Substance: BUPRENORPHINE HYDROCHLORIDE\NALOXONE HYDROCHLORIDE
     Indication: Drug dependence
     Dosage: DURATION: 231 DAYS
     Route: 048
     Dates: start: 20200703, end: 20210219
  4. DIAZEPAM [Suspect]
     Active Substance: DIAZEPAM
     Indication: Anxiety
     Dosage: DURATION: 1 MONTH
     Route: 048
     Dates: start: 20200703, end: 202008
  5. CYAMEMAZINE [Suspect]
     Active Substance: CYAMEMAZINE
     Indication: Schizophrenia
     Dosage: DURATION: 33 DAYS
     Route: 048
     Dates: start: 20200703, end: 20200805
  6. SERETIDE [Suspect]
     Active Substance: FLUTICASONE PROPIONATE\SALMETEROL XINAFOATE
     Indication: Chronic obstructive pulmonary disease
     Dosage: DOSAGE TEXT: 50/25 MICROGRAMS/DOSE, DURATION: 231 DAYS, PRESSURISED INHALATION, SUSPENSION
     Route: 065
     Dates: start: 20200703, end: 20210219

REACTIONS (4)
  - Oligohydramnios [Not Recovered/Not Resolved]
  - Foetal growth restriction [Not Recovered/Not Resolved]
  - Premature baby [Not Recovered/Not Resolved]
  - Microcephaly [Not Recovered/Not Resolved]

NARRATIVE: CASE EVENT DATE: 20210201
